FAERS Safety Report 8851227 (Version 1)
Quarter: 2012Q4

REPORT INFORMATION
  Report Type: Report from Study
  Country: JP (occurrence: JP)
  Receive Date: 20121019
  Receipt Date: 20121019
  Transmission Date: 20130627
  Serious: Yes (Other)
  Sender: FDA-Public Use
  Company Number: JP-VERTEX PHARMACEUTICAL INC.-AE-2012-003194

PATIENT
  Age: 54 Year
  Sex: Female

DRUGS (16)
  1. VX-950 [Suspect]
     Indication: HEPATITIS C
     Dosage: 2250 mg, qd
     Route: 048
     Dates: start: 20120111, end: 20120227
  2. VX-950 [Suspect]
     Dosage: 1500 mg, qd
     Route: 048
     Dates: start: 20120228, end: 20120327
  3. VX-950 [Suspect]
     Dosage: 1250 mg, qd
     Route: 048
     Dates: start: 20120328, end: 20120404
  4. RIBAVIRIN [Suspect]
     Indication: HEPATITIS C
     Dosage: 600 mg, qd
     Route: 048
     Dates: start: 20120111, end: 20120131
  5. RIBAVIRIN [Suspect]
     Dosage: 400 mg, qd
     Route: 048
     Dates: start: 20120201, end: 20120207
  6. RIBAVIRIN [Suspect]
     Dosage: 200mg, 400mg, qod
     Route: 048
     Dates: start: 20120208, end: 20120214
  7. RIBAVIRIN [Suspect]
     Dosage: 200 mg, qd
     Route: 048
     Dates: start: 20120215, end: 20120222
  8. RIBAVIRIN [Suspect]
     Dosage: 200 mg, qod
     Route: 048
     Dates: start: 20120223, end: 20120320
  9. RIBAVIRIN [Suspect]
     Dosage: 200 mg per 2 days a week
     Route: 048
     Dates: start: 20120321, end: 20120405
  10. RIBAVIRIN [Suspect]
     Dosage: 200 mg, qod
     Route: 048
     Dates: start: 20120406, end: 20120410
  11. RIBAVIRIN [Suspect]
     Dosage: 200 mg, qd
     Route: 048
     Dates: start: 20120411, end: 20120417
  12. RIBAVIRIN [Suspect]
     Dosage: 400 mg, qd
     Route: 048
     Dates: start: 20120418, end: 20120627
  13. PEGINTERFERON ALFA-2B [Suspect]
     Indication: HEPATITIS C
     Dosage: 1.5 ?g/kg, qw
     Route: 058
     Dates: start: 20120111, end: 20120627
  14. VOLTAREN                           /00372301/ [Concomitant]
     Dosage: 25 mg, prn
     Route: 048
     Dates: start: 20120111, end: 20120112
  15. MUCOSTA [Concomitant]
     Dosage: 100 mg, prn
     Route: 048
     Dates: start: 20120111, end: 20120112
  16. HIRUDOID                           /00723701/ [Concomitant]
     Route: 061
     Dates: start: 20120111, end: 20120405

REACTIONS (2)
  - White blood cell count decreased [Recovered/Resolved]
  - Haemoglobin decreased [Recovered/Resolved]
